FAERS Safety Report 17447277 (Version 2)
Quarter: 2021Q1

REPORT INFORMATION
  Report Type: Report from Study
  Country: CO (occurrence: CO)
  Receive Date: 20200221
  Receipt Date: 20210211
  Transmission Date: 20210419
  Serious: Yes (Death, Other)
  Sender: FDA-Public Use
  Company Number: CO-TAKEDA-2020TUS010612

PATIENT
  Age: 51 Year
  Sex: Male
  Weight: 52 kg

DRUGS (2)
  1. HYDROMORPHONE [Concomitant]
     Active Substance: HYDROMORPHONE
     Indication: PAIN
     Dosage: 0.4 MILLIGRAM, Q4HR
     Route: 042
  2. PONATINIB [Suspect]
     Active Substance: PONATINIB
     Indication: CHRONIC MYELOID LEUKAEMIA
     Dosage: 45 MILLIGRAM, QD
     Route: 048
     Dates: start: 20181106

REACTIONS (3)
  - Chronic myeloid leukaemia [Unknown]
  - COVID-19 [Fatal]
  - Anaemia [Unknown]

NARRATIVE: CASE EVENT DATE: 20200212
